FAERS Safety Report 21114663 (Version 1)
Quarter: 2022Q3

REPORT INFORMATION
  Report Type: Spontaneous
  Country: US (occurrence: US)
  Receive Date: 20220721
  Receipt Date: 20220721
  Transmission Date: 20221027
  Serious: No
  Sender: FDA-Public Use
  Company Number: US-MEDEXUS PHARMA, INC.-2021MED00050

PATIENT
  Sex: Female

DRUGS (2)
  1. RASUVO [Suspect]
     Active Substance: METHOTREXATE SODIUM
     Indication: Rheumatoid arthritis
     Dosage: 25 MG, 1X/WEEK ON SATURDAYS, ON UPPER THIGH
  2. RASUVO [Suspect]
     Active Substance: METHOTREXATE SODIUM
     Indication: Scleroderma

REACTIONS (4)
  - Pain [Not Recovered/Not Resolved]
  - Product dose omission issue [Recovered/Resolved]
  - Product distribution issue [Not Recovered/Not Resolved]
  - Device malfunction [Unknown]

NARRATIVE: CASE EVENT DATE: 20210101
